FAERS Safety Report 7722105 (Version 4)
Quarter: 2012Q4

REPORT INFORMATION
  Report Type: 
  Country: US (occurrence: US)
  Receive Date: 20101220
  Receipt Date: 20121101
  Transmission Date: 20130627
  Serious: Yes (Other)
  Sender: FDA-Public Use
  Company Number: US-PFIZER INC-2010172568

PATIENT
  Age: 67 Year
  Sex: Female
  Weight: 63 kg

DRUGS (12)
  1. MEDROXYPROGESTERONE ACETATE [Suspect]
     Indication: HORMONE REPLACEMENT THERAPY
     Dosage: UNK
     Route: 048
     Dates: start: 199002, end: 200306
  2. ESTRADIOL [Suspect]
     Indication: HORMONE REPLACEMENT THERAPY
     Dosage: UNK
     Route: 048
     Dates: start: 199002, end: 200306
  3. ESTRADIOL [Suspect]
     Dosage: UNK
     Dates: start: 199710, end: 200208
  4. PROVERA [Suspect]
     Indication: HORMONE REPLACEMENT THERAPY
     Dosage: UNK
     Route: 048
     Dates: start: 19910520, end: 19970624
  5. PROVERA [Suspect]
     Dosage: UNK
     Dates: start: 199710, end: 200208
  6. CYCRIN [Suspect]
     Indication: HORMONE REPLACEMENT THERAPY
     Dosage: UNK
     Route: 048
     Dates: start: 199002, end: 200306
  7. CYCRIN [Suspect]
     Dosage: UNK
     Dates: start: 199710, end: 200208
  8. ESTRACE [Suspect]
     Indication: HORMONE REPLACEMENT THERAPY
     Dosage: UNK
     Route: 048
     Dates: start: 199002, end: 200306
  9. ESTRACE [Suspect]
     Dosage: UNK
     Dates: start: 19910520, end: 19970624
  10. ESTRACE [Suspect]
     Dosage: UNK
     Dates: start: 199710, end: 200208
  11. VAGIFEM [Suspect]
     Indication: HORMONE REPLACEMENT THERAPY
     Dosage: UNK
     Route: 048
     Dates: start: 20030523
  12. MEDROXYPROGESTERONE ACETATE [Suspect]
     Indication: HORMONE REPLACEMENT THERAPY
     Dosage: UNK
     Dates: start: 200201, end: 200207

REACTIONS (2)
  - Breast cancer female [Unknown]
  - Osteoporosis [Unknown]
